FAERS Safety Report 22021941 (Version 1)
Quarter: 2023Q1

REPORT INFORMATION
  Report Type: Spontaneous
  Country: US (occurrence: None)
  Receive Date: 20230219
  Receipt Date: 20230219
  Transmission Date: 20230418
  Serious: Yes (Other)
  Sender: FDA-Public Use
  Company Number: None

PATIENT
  Age: 66 Year
  Sex: Female
  Weight: 45.9 kg

DRUGS (20)
  1. NALTREXONE [Suspect]
     Active Substance: NALTREXONE
     Indication: Pain
     Dosage: OTHER QUANTITY : 100 CAPSULE(S);?FREQUENCY : TWICE A DAY;?
     Route: 048
     Dates: start: 20230214, end: 20230214
  2. ATENOLOL [Concomitant]
     Active Substance: ATENOLOL
  3. ZETIA [Concomitant]
     Active Substance: EZETIMIBE
  4. KLONOPIN [Concomitant]
     Active Substance: CLONAZEPAM
  5. FLONASE NASAL [Concomitant]
  6. VENTURING INHALER [Concomitant]
  7. PANTOPRAZOLE SODIUM [Concomitant]
     Active Substance: PANTOPRAZOLE SODIUM
  8. POTASSIUM CITRATE [Concomitant]
     Active Substance: POTASSIUM CITRATE
  9. SUCRALFATE [Concomitant]
     Active Substance: SUCRALFATE
  10. PAXIL [Concomitant]
     Active Substance: PAROXETINE HYDROCHLORIDE
  11. LISINOPRIL [Concomitant]
     Active Substance: LISINOPRIL
  12. IPRATROPIUM BROMIDE [Concomitant]
     Active Substance: IPRATROPIUM BROMIDE
  13. ASPIRIN [Concomitant]
     Active Substance: ASPIRIN
  14. B-50 COMPLEX [Concomitant]
  15. CALCIUM [Concomitant]
     Active Substance: CALCIUM
  16. IBUPROFEN [Concomitant]
     Active Substance: IBUPROFEN
  17. TYLENOL [Concomitant]
     Active Substance: ACETAMINOPHEN
  18. SENNACIDES [Concomitant]
  19. COENZYME Q10 [Concomitant]
     Active Substance: DIETARY SUPPLEMENT\UBIDECARENONE
  20. VITAMIN D NOS [Concomitant]
     Active Substance: VITAMIN D NOS

REACTIONS (8)
  - Off label use [None]
  - Dizziness [None]
  - Nausea [None]
  - Chest discomfort [None]
  - Dyspnoea [None]
  - Muscular weakness [None]
  - Headache [None]
  - Blood pressure increased [None]

NARRATIVE: CASE EVENT DATE: 20230214
